FAERS Safety Report 21083601 (Version 2)
Quarter: 2022Q3

REPORT INFORMATION
  Report Type: Report from Study
  Country: CA (occurrence: CA)
  Receive Date: 20220714
  Receipt Date: 20220909
  Transmission Date: 20221026
  Serious: Yes (Other)
  Sender: FDA-Public Use
  Company Number: CA-BAUSCH-BL-2022-017570

PATIENT
  Age: 43 Year
  Sex: Female

DRUGS (3)
  1. CONTRAVE [Suspect]
     Active Substance: BUPROPION HYDROCHLORIDE\NALTREXONE HYDROCHLORIDE
     Indication: Weight control
     Dosage: 90MG/8MG (SECOND MONTH, TAKING 1 TAB DAILY: FIRST ATTEMPT)
     Route: 048
     Dates: start: 2021, end: 202109
  2. CONTRAVE [Suspect]
     Active Substance: BUPROPION HYDROCHLORIDE\NALTREXONE HYDROCHLORIDE
     Dosage: 90MG/8MG WENT FROM 1 TO 2 TAB/DAY
     Route: 048
  3. CONTRAVE [Suspect]
     Active Substance: BUPROPION HYDROCHLORIDE\NALTREXONE HYDROCHLORIDE
     Dosage: 90MG/8MG (WEEK 2 AND TAKING 1 TAB DAILY, 2ND ATTEMPT) - STOPPED
     Route: 048
     Dates: start: 20220629, end: 202208

REACTIONS (6)
  - Surgery [Unknown]
  - Nervousness [Recovered/Resolved]
  - Intentional product use issue [Unknown]
  - Product prescribing error [Unknown]
  - Drug titration error [Unknown]
  - Therapy interrupted [Unknown]

NARRATIVE: CASE EVENT DATE: 20210801
